FAERS Safety Report 18007008 (Version 2)
Quarter: 2020Q3

REPORT INFORMATION
  Report Type: Spontaneous
  Country: US (occurrence: US)
  Receive Date: 20200710
  Receipt Date: 20200820
  Transmission Date: 20201103
  Serious: No
  Sender: FDA-Public Use
  Company Number: US-GLAXOSMITHKLINE-US2020123382

PATIENT
  Age: 18 Year
  Sex: Female

DRUGS (4)
  1. NUCALA [Suspect]
     Active Substance: MEPOLIZUMAB
     Indication: ASTHMA
     Dosage: 100 MG, CYC
     Route: 058
     Dates: start: 20200702
  2. AUGMENTIN [Suspect]
     Active Substance: AMOXICILLIN\CLAVULANATE POTASSIUM
     Indication: PRODUCT USED FOR UNKNOWN INDICATION
     Dosage: UNK
  3. NUCALA [Suspect]
     Active Substance: MEPOLIZUMAB
     Indication: ASTHMA
     Dosage: 100 MG, CYC
     Route: 058
     Dates: start: 20200618
  4. PREDNISONE. [Concomitant]
     Active Substance: PREDNISONE
     Indication: ASTHMA
     Dosage: UNK

REACTIONS (4)
  - Dyspnoea [Recovered/Resolved]
  - Rash [Recovered/Resolved]
  - Swelling face [Unknown]
  - Blister [Recovered/Resolved]

NARRATIVE: CASE EVENT DATE: 20200703
